FAERS Safety Report 7444672-6 (Version None)
Quarter: 2011Q2

REPORT INFORMATION
  Report Type: 
  Country: None (occurrence: None)
  Receive Date: 20110429
  Receipt Date: 20110419
  Transmission Date: 20111010
  Serious: Yes (Other)
  Sender: FDA-Public Use
  Company Number: CA-NOVOPROD-326903

PATIENT
  Age: 48 Year
  Sex: Female

DRUGS (2)
  1. VICTOZA [Suspect]
     Indication: PRODUCT USED FOR UNKNOWN INDICATION
     Dosage: 0.6 MG, QD
     Route: 065
  2. VICTOZA [Suspect]
     Dosage: 1.2 MG, QD
     Route: 065

REACTIONS (3)
  - VOMITING [None]
  - LOSS OF CONSCIOUSNESS [None]
  - NAUSEA [None]
